FAERS Safety Report 18764088 (Version 1)
Quarter: 2021Q1

REPORT INFORMATION
  Report Type: Spontaneous
  Country: US (occurrence: US)
  Receive Date: 20210120
  Receipt Date: 20210120
  Transmission Date: 20210419
  Serious: Yes (Life-Threatening, Hospitalization, Other)
  Sender: FDA-Public Use
  Company Number: US-BAYER-2021-023509

PATIENT
  Age: 71 Year
  Sex: Female

DRUGS (1)
  1. ALKA?SELTZER PLUS SORE THROAT RELIEF HONEY LEMON FLAVOR [Suspect]
     Active Substance: ACETAMINOPHEN

REACTIONS (4)
  - Pyroglutamate increased [Unknown]
  - Overdose [None]
  - Metabolic acidosis [Unknown]
  - Analgesic drug level increased [Unknown]
